FAERS Safety Report 6472490-4 (Version None)
Quarter: 2009Q4

REPORT INFORMATION
  Report Type: 
  Country: None (occurrence: None)
  Receive Date: 20091130
  Receipt Date: 20091116
  Transmission Date: 20100525
  Serious: Yes (Life-Threatening, Hospitalization)
  Sender: FDA-Public Use
  Company Number: 091123-0001195

PATIENT
  Age: 66 Year
  Sex: Female

DRUGS (19)
  1. INDOCIN [Suspect]
     Indication: GOUT
     Dosage: 50 MG;TID
     Dates: start: 20091001
  2. BLINDED [Suspect]
     Indication: THROMBOSIS PROPHYLAXIS
     Dosage: PO
     Route: 048
     Dates: start: 20090731
  3. BLINDED [Suspect]
     Indication: THROMBOSIS PROPHYLAXIS
     Dosage: PO
     Route: 048
     Dates: start: 20090731
  4. LASIX [Concomitant]
  5. MAXERAN [Concomitant]
  6. PANTOPRAZOLE [Concomitant]
  7. SLOW-K [Concomitant]
  8. SYNTHROID [Concomitant]
  9. ZOCOR [Concomitant]
  10. AMIODARONE HYDROCHLORIDE [Concomitant]
  11. ASPIRIN [Concomitant]
  12. CALCIUM CARBONATE [Concomitant]
  13. INSULIN [Concomitant]
  14. METOPROLOL TARTRATE [Concomitant]
  15. QUETIAPINE FUMARATE [Concomitant]
  16. SERTRALINE HCL [Concomitant]
  17. SPIRONOLACTONE [Concomitant]
  18. TEMAZEPAM [Concomitant]
  19. VITAMIN D [Concomitant]

REACTIONS (7)
  - DIARRHOEA [None]
  - DIZZINESS [None]
  - HAEMATOCHEZIA [None]
  - HYPERKALAEMIA [None]
  - NODAL RHYTHM [None]
  - RENAL FAILURE ACUTE [None]
  - THERAPEUTIC AGENT TOXICITY [None]
